FAERS Safety Report 6330506-X (Version None)
Quarter: 2009Q3

REPORT INFORMATION
  Report Type: 
  Country: None (occurrence: None)
  Receive Date: 20090827
  Receipt Date: 20090407
  Transmission Date: 20100115
  Serious: No
  Sender: FDA-Public Use
  Company Number: A0777567A

PATIENT
  Age: 47 Year
  Sex: Female

DRUGS (1)
  1. ZOVIRAX [Suspect]
     Indication: GENITAL HERPES
     Dosage: 200MG FIVE TIMES PER DAY
     Route: 048
     Dates: start: 20060101, end: 20080101

REACTIONS (2)
  - DECREASED APPETITE [None]
  - DIARRHOEA [None]
